FAERS Safety Report 10803940 (Version 3)
Quarter: 2015Q1

REPORT INFORMATION
  Report Type: Report from Study
  Country: US (occurrence: US)
  Receive Date: 20150217
  Receipt Date: 20150228
  Transmission Date: 20150721
  Serious: Yes (Other)
  Sender: FDA-Public Use
  Company Number: PHEH2015US002980

PATIENT
  Age: 50 Year
  Sex: Female

DRUGS (1)
  1. GILENYA [Suspect]
     Active Substance: FINGOLIMOD HYDROCHLORIDE
     Indication: MULTIPLE SCLEROSIS
     Dosage: 0.5 OT, QD
     Route: 048
     Dates: start: 20150207, end: 20150207

REACTIONS (1)
  - Electrocardiogram QT interval abnormal [Recovered/Resolved]

NARRATIVE: CASE EVENT DATE: 20150207
